FAERS Safety Report 4300142-5 (Version None)
Quarter: 2004Q1

REPORT INFORMATION
  Report Type: 
  Country: None (occurrence: None)
  Receive Date: 20040218
  Receipt Date: 20040203
  Transmission Date: 20041129
  Serious: Yes (Hospitalization)
  Sender: FDA-Public Use
  Company Number: JP_040102549

PATIENT
  Age: 81 Year
  Sex: Male

DRUGS (3)
  1. HUMULIN L [Suspect]
     Indication: DIABETES MELLITUS
  2. HUMULIN N [Suspect]
     Indication: DIABETES MELLITUS
  3. ISOPHANE INSULIN [Concomitant]

REACTIONS (3)
  - CEREBRAL INFARCTION [None]
  - GLYCOSYLATED HAEMOGLOBIN INCREASED [None]
  - LIPOATROPHY [None]
